FAERS Safety Report 5759927-0 (Version None)
Quarter: 2008Q2

REPORT INFORMATION
  Report Type: 
  Country: None (occurrence: None)
  Receive Date: 20080605
  Receipt Date: 20080521
  Transmission Date: 20081010
  Serious: Yes (Other)
  Sender: FDA-Public Use
  Company Number: PT-MERCK-0805PRT00012

PATIENT
  Age: 26 Year
  Sex: Female
  Weight: 72 kg

DRUGS (2)
  1. SINGULAIR [Suspect]
     Indication: RHINITIS
     Route: 048
  2. SINGULAIR [Suspect]
     Indication: BRONCHITIS
     Route: 048

REACTIONS (1)
  - AMENORRHOEA [None]
